APPROVED DRUG PRODUCT: MORPHINE SULFATE
Active Ingredient: MORPHINE SULFATE
Strength: 1MG/ML
Dosage Form/Route: INJECTABLE;INJECTION
Application: A202861 | Product #001
Applicant: INTERNATIONAL MEDICATION SYSTEMS LTD
Approved: Apr 29, 2021 | RLD: No | RS: No | Type: RX